FAERS Safety Report 20893950 (Version 1)
Quarter: 2022Q2

REPORT INFORMATION
  Report Type: Spontaneous
  Country: US (occurrence: None)
  Receive Date: 20220528
  Receipt Date: 20220528
  Transmission Date: 20220721
  Serious: No
  Sender: FDA-Public Use
  Company Number: None

PATIENT
  Age: 30 Year
  Sex: Male
  Weight: 81.9 kg

DRUGS (1)
  1. MONTELUKAST SODIUM [Suspect]
     Active Substance: MONTELUKAST SODIUM
     Indication: Multiple allergies
     Dosage: OTHER QUANTITY : 1 TABLET(S);?FREQUENCY : AT BEDTIME;?
     Route: 048
     Dates: start: 20220521

REACTIONS (10)
  - Adverse drug reaction [None]
  - Withdrawal syndrome [None]
  - Neuropsychiatric symptoms [None]
  - Depression [None]
  - Anxiety [None]
  - Derealisation [None]
  - Panic attack [None]
  - Nightmare [None]
  - Sleep disorder [None]
  - Intentional dose omission [None]

NARRATIVE: CASE EVENT DATE: 20220528
